FAERS Safety Report 19636268 (Version 1)
Quarter: 2021Q3

REPORT INFORMATION
  Report Type: Report from Study
  Country: US (occurrence: US)
  Receive Date: 20210730
  Receipt Date: 20210730
  Transmission Date: 20211014
  Serious: No
  Sender: FDA-Public Use
  Company Number: US-GLAXOSMITHKLINE-US2021AMR063854

PATIENT
  Sex: Female

DRUGS (1)
  1. BELANTAMAB MAFODOTIN. [Suspect]
     Active Substance: BELANTAMAB MAFODOTIN
     Indication: PRODUCT USED FOR UNKNOWN INDICATION
     Dosage: UNK

REACTIONS (6)
  - Foreign body sensation in eyes [Recovering/Resolving]
  - Visual acuity reduced [Recovering/Resolving]
  - Night blindness [Recovering/Resolving]
  - Corneal epithelial microcysts [Recovering/Resolving]
  - Keratopathy [Recovering/Resolving]
  - Photophobia [Recovering/Resolving]
